FAERS Safety Report 7001623-6 (Version None)
Quarter: 2010Q3

REPORT INFORMATION
  Report Type: 
  Country: None (occurrence: None)
  Receive Date: 20100920
  Receipt Date: 20100907
  Transmission Date: 20110219
  Serious: Yes (Death, Hospitalization, Other)
  Sender: FDA-Public Use
  Company Number: PHHY2010JP43797

PATIENT
  Age: 67 Year
  Sex: Male
  Weight: 60 kg

DRUGS (9)
  1. ICL670A ICL+DISTAB [Suspect]
     Indication: IRON OVERLOAD
     Dosage: 500 MG DAILY
     Route: 048
     Dates: start: 20080725, end: 20090204
  2. ICL670A ICL+DISTAB [Suspect]
     Indication: APLASTIC ANAEMIA
     Dosage: 1000 MG DAILY
     Route: 048
     Dates: start: 20090204, end: 20090421
  3. RHYTHMY [Concomitant]
     Indication: INSOMNIA
     Dosage: 2 MG, UNK
     Route: 048
     Dates: start: 20081112
  4. THIODERON [Concomitant]
     Indication: APLASTIC ANAEMIA
     Dosage: 20 MG, UNK
     Route: 048
     Dates: start: 20081210
  5. CERNILTON [Concomitant]
     Indication: INSOMNIA
     Dosage: 400 MG, UNK
     Route: 048
     Dates: start: 20090205, end: 20090617
  6. BUP-4 [Concomitant]
     Indication: INSOMNIA
     Dosage: 20 MG, UNK
     Route: 048
     Dates: start: 20090205, end: 20090617
  7. ADONA [Concomitant]
     Indication: INSOMNIA
     Dosage: 90 MG, UNK
     Route: 048
     Dates: start: 20090205, end: 20090725
  8. TRANEXAMIC ACID [Concomitant]
     Indication: INSOMNIA
     Dosage: 750 MG, UNK
     Route: 048
     Dates: start: 20090205, end: 20090725
  9. RED BLOOD CELLS [Concomitant]
     Dosage: 2-4 UNITS EVERY 2 WEEKS
     Dates: end: 20091212

REACTIONS (3)
  - DISEASE PROGRESSION [None]
  - GENERAL PHYSICAL HEALTH DETERIORATION [None]
  - SEPSIS [None]
